FAERS Safety Report 17886706 (Version 3)
Quarter: 2020Q3

REPORT INFORMATION
  Report Type: Report from Study
  Country: None (occurrence: JP)
  Receive Date: 20200612
  Receipt Date: 20200806
  Transmission Date: 20201103
  Serious: Yes (Hospitalization)
  Sender: FDA-Public Use
  Company Number: JP-ABBVIE-20K-087-3374772-00

PATIENT
  Age: 78 Year
  Sex: Male

DRUGS (2)
  1. DUODOPA [Suspect]
     Active Substance: CARBIDOPA\LEVODOPA
     Indication: PARKINSON^S DISEASE
     Route: 050
     Dates: start: 20200131, end: 2020
  2. DUODOPA [Suspect]
     Active Substance: CARBIDOPA\LEVODOPA
     Route: 050
     Dates: start: 20200210

REACTIONS (10)
  - Parkinson^s disease [Unknown]
  - Stoma site erythema [Recovering/Resolving]
  - Stoma site reaction [Unknown]
  - Stoma site oedema [Recovering/Resolving]
  - Stoma site discharge [Unknown]
  - Stoma site discharge [Recovered/Resolved]
  - Psychiatric symptom [Unknown]
  - Mobility decreased [Unknown]
  - Stoma site pain [Unknown]
  - Stoma site haemorrhage [Unknown]

NARRATIVE: CASE EVENT DATE: 2020
